FAERS Safety Report 22519608 (Version 1)
Quarter: 2023Q2

REPORT INFORMATION
  Report Type: Spontaneous
  Country: US (occurrence: US)
  Receive Date: 20230605
  Receipt Date: 20230605
  Transmission Date: 20230722
  Serious: No
  Sender: FDA-Public Use
  Company Number: US-SA-SAC20230605000246

PATIENT

DRUGS (1)
  1. SELENIUM SULFIDE [Suspect]
     Active Substance: SELENIUM SULFIDE

REACTIONS (5)
  - Dandruff [Unknown]
  - Condition aggravated [Unknown]
  - Pruritus [Unknown]
  - Alopecia [Unknown]
  - Seborrhoea [Unknown]
